FAERS Safety Report 11788403 (Version 2)
Quarter: 2016Q4

REPORT INFORMATION
  Report Type: Spontaneous
  Country: US (occurrence: US)
  Receive Date: 20151201
  Receipt Date: 20161201
  Transmission Date: 20170206
  Serious: No
  Sender: FDA-Public Use
  Company Number: US-APOTEX-2014AP003237

PATIENT
  Sex: Female

DRUGS (1)
  1. NICOTINE EXTENDED RELEASE TRANSDERMAL FILM [Suspect]
     Active Substance: NICOTINE
     Indication: PRODUCT USED FOR UNKNOWN INDICATION
     Dosage: UNK
     Route: 062
     Dates: start: 201405

REACTIONS (1)
  - Product adhesion issue [Recovered/Resolved]

NARRATIVE: CASE EVENT DATE: 2014
